FAERS Safety Report 9250476 (Version 1)
Quarter: 2013Q1

REPORT INFORMATION
  Report Type: Spontaneous
  Country: US (occurrence: None)
  Receive Date: 20130305
  Receipt Date: 20130305
  Transmission Date: 20140127
  Serious: Yes (Other)
  Sender: FDA-Public Use
  Company Number: 163-21880-12062653

PATIENT
  Age: 73 Year
  Sex: Male
  Weight: 97.52 kg

DRUGS (6)
  1. REVLIMID [Suspect]
     Indication: MYELODYSPLASTIC SYNDROME
     Route: 048
     Dates: start: 20120616, end: 20120618
  2. ACTOS (PIOGLITAZONE) [Concomitant]
  3. HUMALOG (INSULIN LISPRO) [Concomitant]
  4. LIPITOR (ATORVASTATIN) [Concomitant]
  5. QUINAPRIL (QUINAPRIL) [Concomitant]
  6. MULTIVITAMIN (MULTIVITAMIN) [Concomitant]

REACTIONS (3)
  - Eye swelling [None]
  - Pruritus [None]
  - Pruritus [None]
